FAERS Safety Report 20783206 (Version 2)
Quarter: 2022Q4

REPORT INFORMATION
  Report Type: Spontaneous
  Country: FR (occurrence: FR)
  Receive Date: 20220504
  Receipt Date: 20221004
  Transmission Date: 20230113
  Serious: Yes (Hospitalization)
  Sender: FDA-Public Use
  Company Number: None

PATIENT
  Age: 86 Year
  Sex: Female
  Weight: 95 kg

DRUGS (16)
  1. EBASTINE [Suspect]
     Active Substance: EBASTINE
     Indication: Bronchitis
     Dosage: 1 DF, QD
     Route: 048
     Dates: start: 20171012, end: 20171031
  2. FLUINDIONE [Suspect]
     Active Substance: FLUINDIONE
     Indication: Pulmonary embolism
     Dosage: 1 DF, QD
     Route: 048
     Dates: end: 20171106
  3. CEFPODOXIME [Suspect]
     Active Substance: CEFPODOXIME
     Indication: Bronchitis
     Dosage: 4 DF, QD
     Route: 048
     Dates: start: 20171026, end: 20171031
  4. PREDNISOLONE SODIUM METAZOATE [Suspect]
     Active Substance: PREDNISOLONE SODIUM METAZOATE
     Indication: Bronchitis
     Dosage: 40 MG, QD
     Route: 048
     Dates: start: 20171026, end: 20171031
  5. PHOLCODINE [Suspect]
     Active Substance: PHOLCODINE
     Indication: Bronchitis
     Dosage: UNK
     Route: 048
     Dates: start: 20171012, end: 20171031
  6. LEVOTHYROXINE [Concomitant]
     Active Substance: LEVOTHYROXINE
     Dosage: UNK
  7. ALLOPURINOL [Concomitant]
     Active Substance: ALLOPURINOL
     Dosage: UNK
     Dates: start: 20171017, end: 20171021
  8. ALLOPURINOL [Concomitant]
     Active Substance: ALLOPURINOL
     Dosage: UNK
     Dates: start: 20171024, end: 20171026
  9. ALLOPURINOL [Concomitant]
     Active Substance: ALLOPURINOL
     Dosage: UNK
  10. FUROSEMIDE [Concomitant]
     Active Substance: FUROSEMIDE
     Dosage: UNK
  11. FUROSEMIDE [Concomitant]
     Active Substance: FUROSEMIDE
     Dosage: UNK
  12. GLICLAZIDE [Concomitant]
     Active Substance: GLICLAZIDE
     Dosage: UNK
  13. AMOXICILLIN [Concomitant]
     Active Substance: AMOXICILLIN
     Dosage: UNK
     Dates: start: 20171024, end: 20171026
  14. JANUVIA [Concomitant]
     Active Substance: SITAGLIPTIN PHOSPHATE
     Dosage: UNK
     Route: 048
  15. AZITHROMYCIN DIHYDRATE [Concomitant]
     Active Substance: AZITHROMYCIN DIHYDRATE
     Dosage: UNK
     Dates: start: 20171017, end: 20171021
  16. HERBALS\VITIS VINIFERA LEAF [Concomitant]
     Active Substance: HERBALS\VITIS VINIFERA LEAF
     Dosage: UNK

REACTIONS (2)
  - International normalised ratio increased [Recovered/Resolved]
  - Acute generalised exanthematous pustulosis [Recovered/Resolved]

NARRATIVE: CASE EVENT DATE: 20171031
